FAERS Safety Report 9229147 (Version 2)
Quarter: 2013Q2

REPORT INFORMATION
  Report Type: Report from Study
  Country: IT (occurrence: IT)
  Receive Date: 20130412
  Receipt Date: 20130419
  Transmission Date: 20140414
  Serious: Yes (Hospitalization)
  Sender: FDA-Public Use
  Company Number: IT-BRISTOL-MYERS SQUIBB COMPANY-18766790

PATIENT
  Age: 54 Year
  Sex: Male
  Weight: 82 kg

DRUGS (10)
  1. ALD518 [Suspect]
     Indication: STOMATITIS
     Dosage: LAST DOSE: 22-MAR-2013)
     Route: 042
     Dates: start: 20130204, end: 20130204
  2. CISPLATIN [Suspect]
     Indication: HEAD AND NECK CANCER
     Dosage: 1 DF = 1ST DOSE 100MG+100MG?2ND DOSE 95MG+95MG?5FB13-6FB13?26FB13-26FB13
     Route: 042
     Dates: start: 20130205, end: 20130226
  3. BLINDED: PLACEBO [Suspect]
     Indication: STOMATITIS
     Route: 042
     Dates: start: 20130205, end: 20130226
  4. RANITIDINE [Concomitant]
     Indication: PROPHYLAXIS AGAINST GASTROINTESTINAL ULCER
     Route: 048
     Dates: start: 20130208
  5. HYALURONIC ACID [Concomitant]
     Indication: DRY SKIN PROPHYLAXIS
     Dosage: 4MAR13 IS ALSO TKN
     Route: 061
     Dates: start: 20130204
  6. HYALURONIC ACID [Concomitant]
     Indication: STOMATITIS
     Dosage: 4MAR13 IS ALSO TKN
     Route: 061
     Dates: start: 20130204
  7. LIDOCAINE [Concomitant]
     Indication: STOMATITIS
     Route: 061
     Dates: start: 20130225
  8. ALUMINIUM HYDROXIDE [Concomitant]
     Indication: PROPHYLAXIS AGAINST GASTROINTESTINAL ULCER
     Route: 048
     Dates: start: 20130225
  9. AUGMENTIN [Concomitant]
     Indication: PHARYNGITIS
     Route: 048
     Dates: start: 20130307
  10. SALINE [Concomitant]
     Indication: STOMATITIS
     Route: 048

REACTIONS (1)
  - Pneumonitis [Recovered/Resolved]
